FAERS Safety Report 9807075 (Version 1)
Quarter: 2014Q1

REPORT INFORMATION
  Report Type: Spontaneous
  Country: DE (occurrence: DE)
  Receive Date: 20140110
  Receipt Date: 20140110
  Transmission Date: 20141002
  Serious: Yes (Other)
  Sender: FDA-Public Use
  Company Number: DE-ROCHE-1195439

PATIENT
  Sex: Female

DRUGS (2)
  1. DIAZEPAM [Suspect]
     Indication: PERSONALITY DISORDER
     Route: 048
  2. DOXEPIN [Suspect]
     Indication: PERSONALITY DISORDER
     Route: 048

REACTIONS (2)
  - Suicide attempt [Unknown]
  - Exposure during pregnancy [Unknown]
